FAERS Safety Report 10220411 (Version 2)
Quarter: 2014Q2

REPORT INFORMATION
  Report Type: Spontaneous
  Country: US (occurrence: US)
  Receive Date: 20140606
  Receipt Date: 20140610
  Transmission Date: 20141212
  Serious: No
  Sender: FDA-Public Use
  Company Number: US-BIOGENIDEC-2014BI052523

PATIENT
  Sex: Female

DRUGS (2)
  1. AVONEX [Suspect]
     Indication: MULTIPLE SCLEROSIS
     Route: 030
  2. AVONEX [Suspect]
     Indication: MULTIPLE SCLEROSIS
     Route: 030
     Dates: start: 20071114

REACTIONS (6)
  - Fibromyalgia [Not Recovered/Not Resolved]
  - Restless legs syndrome [Unknown]
  - Catheter placement [Unknown]
  - General symptom [Unknown]
  - Depression [Unknown]
  - Anxiety disorder [Unknown]
